FAERS Safety Report 4439697-9 (Version None)
Quarter: 2004Q3

REPORT INFORMATION
  Report Type: 
  Country: None (occurrence: None)
  Receive Date: 20040902
  Receipt Date: 20040510
  Transmission Date: 20050211
  Serious: Yes (Hospitalization, Other)
  Sender: FDA-Public Use
  Company Number: 200413619US

PATIENT
  Sex: Male

DRUGS (4)
  1. LEFLUNOMIDE [Suspect]
     Indication: RHEUMATOID ARTHRITIS
     Route: 048
     Dates: start: 19990101
  2. ENBREL [Suspect]
     Indication: RHEUMATOID ARTHRITIS
     Route: 058
     Dates: start: 20030131, end: 20031031
  3. ACETYLSALICYLIC ACID [Concomitant]
     Dates: start: 20011228
  4. INDOCIN [Concomitant]
     Dosage: DOSE: UNK

REACTIONS (9)
  - ACUTE PULMONARY OEDEMA [None]
  - BACTERAEMIA [None]
  - FEELING ABNORMAL [None]
  - IMPAIRED HEALING [None]
  - JOINT SWELLING [None]
  - NASOPHARYNGITIS [None]
  - POST PROCEDURAL DISCHARGE [None]
  - POSTOPERATIVE INFECTION [None]
  - POSTOPERATIVE WOUND COMPLICATION [None]
